FAERS Safety Report 4437724-6 (Version None)
Quarter: 2004Q3

REPORT INFORMATION
  Report Type: 
  Country: None (occurrence: None)
  Receive Date: 20040831
  Receipt Date: 20030313
  Transmission Date: 20050211
  Serious: No
  Sender: FDA-Public Use
  Company Number: US-GLAXOSMITHKLINE-A0400249A

PATIENT
  Age: 55 Year
  Sex: Female

DRUGS (3)
  1. ZOVIRAX [Suspect]
     Dosage: 400MG PER DAY
     Route: 048
     Dates: start: 19860101
  2. HORMONE REPLACEMENT [Concomitant]
  3. ANTIBIOTIC [Concomitant]

REACTIONS (2)
  - FACIAL PALSY [None]
  - FACIAL SPASM [None]
